FAERS Safety Report 25179497 (Version 1)
Quarter: 2025Q2

REPORT INFORMATION
  Report Type: Spontaneous
  Country: FR (occurrence: FR)
  Receive Date: 20250409
  Receipt Date: 20250409
  Transmission Date: 20250717
  Serious: Yes (Hospitalization, Other)
  Sender: SANOFI AVENTIS
  Company Number: None

PATIENT
  Age: 75 Year
  Sex: Female
  Weight: 95 kg

DRUGS (4)
  1. RIFAMPIN [Suspect]
     Active Substance: RIFAMPIN
     Indication: Staphylococcal sepsis
     Dosage: 600 MG, QD
     Route: 042
     Dates: start: 20250203, end: 20250212
  2. RIFAMPIN [Suspect]
     Active Substance: RIFAMPIN
     Route: 042
     Dates: start: 20250217, end: 20250306
  3. DAPTOMYCIN [Suspect]
     Active Substance: DAPTOMYCIN
     Indication: Staphylococcal sepsis
     Dosage: 700 MG, QD
     Route: 042
     Dates: start: 20250203, end: 20250212
  4. CEFEPIME [Suspect]
     Active Substance: CEFEPIME HYDROCHLORIDE
     Indication: Staphylococcal sepsis
     Dosage: 1.5 G, TID
     Route: 042
     Dates: start: 20250203, end: 20250212

REACTIONS (2)
  - Rhabdomyolysis [Recovered/Resolved]
  - Acute kidney injury [Recovered/Resolved]

NARRATIVE: CASE EVENT DATE: 20250212
